FAERS Safety Report 8241093-3 (Version None)
Quarter: 2012Q1

REPORT INFORMATION
  Report Type: 
  Country: None (occurrence: None)
  Receive Date: 20120328
  Receipt Date: 20120320
  Transmission Date: 20120608
  Serious: Yes (Other)
  Sender: FDA-Public Use
  Company Number: US-GLAXOSMITHKLINE-A0968631A

PATIENT
  Sex: Female

DRUGS (1)
  1. TYKERB [Suspect]
     Indication: BREAST CANCER
     Dosage: 750MGD PER DAY
     Route: 048

REACTIONS (7)
  - HYPOTENSION [None]
  - DIARRHOEA [None]
  - WEIGHT DECREASED [None]
  - PYREXIA [None]
  - NEUTROPENIA [None]
  - DEHYDRATION [None]
  - GASTROOESOPHAGEAL REFLUX DISEASE [None]
